FAERS Safety Report 9891047 (Version 1)
Quarter: 2014Q1

REPORT INFORMATION
  Report Type: Spontaneous
  Country: US (occurrence: None)
  Receive Date: 20140207
  Receipt Date: 20140207
  Transmission Date: 20141002
  Serious: Yes (Death)
  Sender: FDA-Public Use
  Company Number: SYM-2014-15609

PATIENT
  Age: 64 Year
  Sex: Female

DRUGS (5)
  1. DILTIAZEM [Suspect]
     Indication: PRODUCT USED FOR UNKNOWN INDICATION
     Route: 048
  2. METOPROLOL (EXTENDED RELEASE) [Suspect]
     Indication: PRODUCT USED FOR UNKNOWN INDICATION
     Route: 048
  3. CITALOPRAM (CITALOPRAM) (CITALOPRAM) [Suspect]
     Indication: PRODUCT USED FOR UNKNOWN INDICATION
     Route: 048
  4. SITAGLIPTIN [Suspect]
     Indication: PRODUCT USED FOR UNKNOWN INDICATION
     Route: 048
  5. ALPRAZOLAM (ALPRAZOLAM) (ALPRAZOLAM) [Suspect]
     Indication: PRODUCT USED FOR UNKNOWN INDICATION
     Route: 048

REACTIONS (14)
  - Suicide attempt [None]
  - Unresponsive to stimuli [None]
  - Completed suicide [None]
  - Dialysis [None]
  - Mydriasis [None]
  - Acidosis [None]
  - Anuria [None]
  - Thrombocytopenia [None]
  - Tachycardia [None]
  - Hypertension [None]
  - Poor peripheral circulation [None]
  - Atrial fibrillation [None]
  - Blood pressure decreased [None]
  - Toxicity to various agents [None]
